FAERS Safety Report 19521172 (Version 2)
Quarter: 2021Q3

REPORT INFORMATION
  Report Type: Spontaneous
  Country: JP (occurrence: JP)
  Receive Date: 20210712
  Receipt Date: 20210730
  Transmission Date: 20211014
  Serious: Yes (Death, Life-Threatening, Other)
  Sender: FDA-Public Use
  Company Number: JP-OTSUKA-2021_023701

PATIENT
  Age: 33 Year
  Sex: Male

DRUGS (12)
  1. CYTARABINE. [Suspect]
     Active Substance: CYTARABINE
     Indication: CORD BLOOD TRANSPLANT THERAPY
     Dosage: 3000 MG/M2, BID
     Route: 042
  2. METHYLPREDNISOLONE. [Concomitant]
     Active Substance: METHYLPREDNISOLONE
     Indication: PRODUCT USED FOR UNKNOWN INDICATION
     Dosage: 2 MG/KG, DAILY DOSE
     Route: 065
  3. TACROLIMUS MONOHYDRATE [Suspect]
     Active Substance: TACROLIMUS
     Indication: PROPHYLAXIS AGAINST GRAFT VERSUS HOST DISEASE
     Dosage: UNK
     Route: 065
  4. MELPHALAN. [Suspect]
     Active Substance: MELPHALAN
     Indication: CORD BLOOD TRANSPLANT THERAPY
     Dosage: 70 MG/M2, QD
     Route: 042
  5. MYCOPHENOLATE MOFETIL. [Suspect]
     Active Substance: MYCOPHENOLATE MOFETIL
     Indication: PROPHYLAXIS AGAINST GRAFT VERSUS HOST DISEASE
     Dosage: 1000 MG,  DAILY DOSE
     Route: 065
  6. ANTITHYMOCYTE IMMUNOGLOBULIN (RABBIT) [Suspect]
     Active Substance: LAPINE T-LYMPHOCYTE IMMUNE GLOBULIN
     Indication: PROPHYLAXIS AGAINST GRAFT VERSUS HOST DISEASE
     Dosage: 1 MG/KG
     Route: 042
  7. BUSULFEX [Suspect]
     Active Substance: BUSULFAN
     Indication: CORD BLOOD TRANSPLANT THERAPY
     Dosage: 3.2 MG/KG, QID
     Route: 042
  8. FLUDARABINE PHOSPHATE. [Suspect]
     Active Substance: FLUDARABINE PHOSPHATE
     Indication: CORD BLOOD TRANSPLANT THERAPY
     Dosage: 30 MG/M2, QD
     Route: 042
  9. GANCICLOVIR. [Concomitant]
     Active Substance: GANCICLOVIR
     Indication: PRODUCT USED FOR UNKNOWN INDICATION
     Dosage: UNK
     Route: 065
  10. ACICLOVIR [Suspect]
     Active Substance: ACYCLOVIR
     Indication: PROPHYLAXIS
     Dosage: UNK
     Route: 065
  11. IMMUNOGLOBULIN HUMAN NORMAL [Suspect]
     Active Substance: HUMAN IMMUNOGLOBULIN G
     Indication: PROPHYLAXIS
     Dosage: UNK
     Route: 065
  12. METHYLPREDNISOLONE. [Concomitant]
     Active Substance: METHYLPREDNISOLONE
     Dosage: 0.5 MG/KG
     Route: 065

REACTIONS (6)
  - Cerebral haemorrhage [Fatal]
  - Cytomegalovirus viraemia [Unknown]
  - Pancytopenia [Unknown]
  - Adenoviral hepatitis [Unknown]
  - Incorrect product administration duration [Unknown]
  - Acute hepatic failure [Unknown]
